FAERS Safety Report 14367798 (Version 6)
Quarter: 2021Q3

REPORT INFORMATION
  Report Type: Spontaneous
  Country: GB (occurrence: GB)
  Receive Date: 20180109
  Receipt Date: 20210913
  Transmission Date: 20211014
  Serious: Yes (Hospitalization, Other)
  Sender: FDA-Public Use
  Company Number: GB-ABBVIE-18P-167-2213715-00

PATIENT
  Age: 48 Year
  Sex: Female

DRUGS (11)
  1. VITAMIN D3 [Concomitant]
     Active Substance: CHOLECALCIFEROL
     Indication: PRODUCT USED FOR UNKNOWN INDICATION
     Route: 050
  2. CLOZAPINE. [Suspect]
     Active Substance: CLOZAPINE
     Dosage: AM
     Route: 065
  3. MIRTAZAPINE. [Concomitant]
     Active Substance: MIRTAZAPINE
     Indication: PRODUCT USED FOR UNKNOWN INDICATION
  4. SODIUM VALPROATE [Suspect]
     Active Substance: VALPROATE SODIUM
     Indication: SEIZURE
     Route: 048
     Dates: start: 201707
  5. CLOZARIL [Suspect]
     Active Substance: CLOZAPINE
     Route: 048
  6. HYOSCINE [Concomitant]
     Active Substance: SCOPOLAMINE
     Indication: PRODUCT USED FOR UNKNOWN INDICATION
  7. ATORVASTATIN [Concomitant]
     Active Substance: ATORVASTATIN
     Indication: PRODUCT USED FOR UNKNOWN INDICATION
  8. HALOPERIDOL. [Concomitant]
     Active Substance: HALOPERIDOL
     Indication: PRODUCT USED FOR UNKNOWN INDICATION
  9. CLOZARIL [Suspect]
     Active Substance: CLOZAPINE
     Indication: SCHIZOPHRENIA
     Route: 048
     Dates: start: 20060718
  10. CLOZAPINE. [Suspect]
     Active Substance: CLOZAPINE
     Indication: PRODUCT USED FOR UNKNOWN INDICATION
     Dosage: PM
     Route: 065
  11. PHENYTOIN. [Suspect]
     Active Substance: PHENYTOIN
     Indication: PRODUCT USED FOR UNKNOWN INDICATION
     Route: 065

REACTIONS (16)
  - Alanine aminotransferase abnormal [Unknown]
  - Hypercholesterolaemia [Unknown]
  - Antipsychotic drug level below therapeutic [Unknown]
  - Hyponatraemia [Unknown]
  - Generalised tonic-clonic seizure [Unknown]
  - Fall [Unknown]
  - Drug level changed [Not Recovered/Not Resolved]
  - Thrombocytopenia [Recovering/Resolving]
  - Balance disorder [Unknown]
  - Mobility decreased [Unknown]
  - Condition aggravated [Unknown]
  - Blood alkaline phosphatase increased [Not Recovered/Not Resolved]
  - Infection [Unknown]
  - Gait disturbance [Unknown]
  - Glomerular filtration rate decreased [Unknown]
  - Physical disability [Unknown]

NARRATIVE: CASE EVENT DATE: 2017
